FAERS Safety Report 6297414-4 (Version None)
Quarter: 2009Q3

REPORT INFORMATION
  Report Type: 
  Country: None (occurrence: None)
  Receive Date: 20090805
  Receipt Date: 20090728
  Transmission Date: 20100115
  Serious: Yes (Other)
  Sender: FDA-Public Use
  Company Number: US-JNJFOC-20090709742

PATIENT
  Sex: Female
  Weight: 70.31 kg

DRUGS (2)
  1. RISPERIDONE [Suspect]
     Indication: SCHIZOAFFECTIVE DISORDER
     Route: 048
  2. KLONOPIN [Concomitant]
     Indication: ANXIETY
     Route: 048

REACTIONS (4)
  - DIVERTICULUM [None]
  - INSOMNIA [None]
  - INTESTINAL OBSTRUCTION [None]
  - TREMOR [None]
